FAERS Safety Report 5736713-9 (Version None)
Quarter: 2008Q2

REPORT INFORMATION
  Report Type: 
  Country: None (occurrence: None)
  Receive Date: 20080513
  Receipt Date: 20080505
  Transmission Date: 20081010
  Serious: Yes (Other)
  Sender: FDA-Public Use
  Company Number: AU-PFIZER INC-2008039641

PATIENT
  Sex: Female

DRUGS (3)
  1. LIPITOR [Suspect]
     Indication: BLOOD CHOLESTEROL INCREASED
     Route: 048
  2. EPROSARTAN MESILATE/HYDROCHLOROTHIAZIDE [Concomitant]
  3. FISH OIL [Concomitant]

REACTIONS (2)
  - ASTHENIA [None]
  - PAIN IN EXTREMITY [None]
